FAERS Safety Report 6999868-4 (Version None)
Quarter: 2010Q3

REPORT INFORMATION
  Report Type: 
  Country: None (occurrence: None)
  Receive Date: 20100920
  Receipt Date: 20070426
  Transmission Date: 20110219
  Serious: Yes (Other)
  Sender: FDA-Public Use
  Company Number: US-ASTRAZENECA-2006UW08256

PATIENT
  Age: 18472 Day
  Sex: Male
  Weight: 77.1 kg

DRUGS (12)
  1. SEROQUEL [Suspect]
     Indication: BIPOLAR DISORDER
     Dosage: 25-100MG
     Route: 048
     Dates: start: 20050702
  2. SEROQUEL [Suspect]
     Dosage: 25-200 MG
     Route: 048
     Dates: start: 20050703
  3. SEROQUEL [Suspect]
     Dosage: 25-200 MG
     Route: 048
     Dates: start: 20050913
  4. SEROQUEL [Suspect]
     Dosage: 25-200 MG
     Route: 048
     Dates: start: 20051102
  5. LITHIUM [Concomitant]
  6. DEPAKOTE [Concomitant]
  7. AMBIEN [Concomitant]
     Dosage: 5-10MG
     Dates: start: 20000925, end: 20030306
  8. NEURONTIN [Concomitant]
     Dates: start: 20001211
  9. ZYPREXA [Concomitant]
     Dosage: 2.5-20MG
     Dates: start: 20001211
  10. REMERON [Concomitant]
     Dates: start: 20001211
  11. VIOXX [Concomitant]
     Dosage: 25-50MG
     Dates: start: 20020130
  12. LORTAB [Concomitant]
     Indication: HYPERTENSION
     Dates: start: 20050701

REACTIONS (4)
  - DIABETES MELLITUS [None]
  - DIABETIC KETOACIDOSIS [None]
  - HYPERGLYCAEMIA [None]
  - PANCREATITIS [None]
